FAERS Safety Report 14940715 (Version 3)
Quarter: 2019Q2

REPORT INFORMATION
  Report Type: Spontaneous
  Country: US (occurrence: US)
  Receive Date: 20180525
  Receipt Date: 20190524
  Transmission Date: 20190711
  Serious: No
  Sender: FDA-Public Use
  Company Number: US-ACTELION-A-NJ2018-172178

PATIENT
  Age: 7 Year
  Sex: Male
  Weight: 10.43 kg

DRUGS (2)
  1. TRACLEER [Suspect]
     Active Substance: BOSENTAN
     Indication: PULMONARY ARTERIAL HYPERTENSION
     Dosage: 32 MG, BID
     Route: 048
     Dates: start: 20180501
  2. OXYGEN. [Concomitant]
     Active Substance: OXYGEN
     Dosage: 2 L AT NIGHT

REACTIONS (9)
  - Cough [Unknown]
  - Seasonal allergy [Unknown]
  - Erythema [Unknown]
  - Pyrexia [Unknown]
  - Nasal congestion [Unknown]
  - Fatigue [Unknown]
  - Factor V Leiden mutation [Unknown]
  - Rhinorrhoea [Unknown]
  - Epistaxis [Unknown]

NARRATIVE: CASE EVENT DATE: 20180504
